FAERS Safety Report 23667008 (Version 3)
Quarter: 2024Q4

REPORT INFORMATION
  Report Type: Spontaneous
  Country: RU (occurrence: RU)
  Receive Date: 20240325
  Receipt Date: 20241001
  Transmission Date: 20250115
  Serious: Yes (Other)
  Sender: NOVO NORDISK
  Company Number: RU-NOVOPROD-1190613

PATIENT
  Sex: Male

DRUGS (1)
  1. TRESIBA [Suspect]
     Active Substance: INSULIN DEGLUDEC
     Indication: Device therapy
     Dosage: 20 IU, QD
     Dates: start: 20231016, end: 20231017

REACTIONS (3)
  - Drug delivery system issue [Unknown]
  - Device leakage [Unknown]
  - Liquid product physical issue [Unknown]
